FAERS Safety Report 23968504 (Version 12)
Quarter: 2024Q4

REPORT INFORMATION
  Report Type: Report from Study
  Country: IL (occurrence: IL)
  Receive Date: 20240612
  Receipt Date: 20241231
  Transmission Date: 20250114
  Serious: Yes (Hospitalization, Other)
  Sender: PFIZER
  Company Number: IL-PFIZER INC-PV202300000303

PATIENT
  Age: 70 Year
  Sex: Male

DRUGS (43)
  1. BRAFTOVI [Suspect]
     Active Substance: ENCORAFENIB
     Indication: Metastatic malignant melanoma
     Dosage: 450 MG, 1X/DAY
     Route: 048
     Dates: start: 20220913, end: 20230101
  2. BRAFTOVI [Suspect]
     Active Substance: ENCORAFENIB
     Dosage: UNK
     Dates: start: 20230104, end: 20230109
  3. BRAFTOVI [Suspect]
     Active Substance: ENCORAFENIB
     Dosage: 450 MG, 1X/DAY
     Route: 048
     Dates: start: 20230112, end: 20230119
  4. BRAFTOVI [Suspect]
     Active Substance: ENCORAFENIB
     Dosage: 450 MG, 1X/DAY
     Route: 048
     Dates: start: 20230123, end: 20230124
  5. BRAFTOVI [Suspect]
     Active Substance: ENCORAFENIB
     Dosage: UNK
     Dates: start: 20230129, end: 20230207
  6. BRAFTOVI [Suspect]
     Active Substance: ENCORAFENIB
     Dosage: 300 MG
     Route: 048
  7. BRAFTOVI [Suspect]
     Active Substance: ENCORAFENIB
     Dosage: 225 MG, DAILY
     Route: 048
     Dates: start: 20230309
  8. BRAFTOVI [Suspect]
     Active Substance: ENCORAFENIB
     Dosage: UNK
  9. BRAFTOVI [Suspect]
     Active Substance: ENCORAFENIB
     Dosage: 225 MG, DAILY
     Route: 048
  10. BRAFTOVI [Suspect]
     Active Substance: ENCORAFENIB
     Dosage: 225 MG, DAILY
     Route: 048
  11. BRAFTOVI [Suspect]
     Active Substance: ENCORAFENIB
     Dosage: 225 MG, DAILY
     Route: 048
  12. BRAFTOVI [Suspect]
     Active Substance: ENCORAFENIB
     Dosage: 225 MG, DAILY
     Route: 048
  13. BRAFTOVI [Suspect]
     Active Substance: ENCORAFENIB
     Dosage: 300 MG, 1X/DAY
     Route: 048
     Dates: start: 20240111, end: 20240202
  14. BRAFTOVI [Suspect]
     Active Substance: ENCORAFENIB
     Dosage: 300 MG, 1X/DAY
     Route: 048
  15. BRAFTOVI [Suspect]
     Active Substance: ENCORAFENIB
     Dosage: 300 MG, 1X/DAY
     Route: 048
     Dates: end: 20240619
  16. BRAFTOVI [Suspect]
     Active Substance: ENCORAFENIB
     Dosage: 300 MG, 1X/DAY
     Route: 048
     Dates: start: 20240621, end: 20240624
  17. BRAFTOVI [Suspect]
     Active Substance: ENCORAFENIB
     Dosage: 300 MG, 1X/DAY
     Route: 048
     Dates: end: 20240629
  18. BRAFTOVI [Suspect]
     Active Substance: ENCORAFENIB
     Dosage: 300 MG, 1X/DAY
     Route: 048
  19. BRAFTOVI [Suspect]
     Active Substance: ENCORAFENIB
     Dosage: 300 MG, 1X/DAY
     Route: 048
  20. BRAFTOVI [Suspect]
     Active Substance: ENCORAFENIB
     Dosage: 300 MG, 1X/DAY
     Route: 048
  21. BRAFTOVI [Suspect]
     Active Substance: ENCORAFENIB
     Dosage: 300 MG, 1X/DAY
     Route: 048
  22. MEKTOVI [Suspect]
     Active Substance: BINIMETINIB
     Indication: Metastatic malignant melanoma
     Dosage: 45 MG, 2X/DAY
     Route: 048
     Dates: start: 20220913, end: 20230101
  23. MEKTOVI [Suspect]
     Active Substance: BINIMETINIB
     Dosage: UNK
     Dates: start: 20230104, end: 20230109
  24. MEKTOVI [Suspect]
     Active Substance: BINIMETINIB
     Dosage: 45 MG, 2X/DAY
     Route: 048
     Dates: start: 20230112, end: 20230119
  25. MEKTOVI [Suspect]
     Active Substance: BINIMETINIB
     Dosage: 45 MG, 2X/DAY
     Route: 048
     Dates: start: 20230123, end: 20230124
  26. MEKTOVI [Suspect]
     Active Substance: BINIMETINIB
     Dosage: UNK
     Dates: start: 20230129, end: 20230207
  27. MEKTOVI [Suspect]
     Active Substance: BINIMETINIB
     Dosage: 30 MG, 2X/DAY
  28. MEKTOVI [Suspect]
     Active Substance: BINIMETINIB
     Dosage: 30 MG, 2X/DAY
     Route: 048
  29. MEKTOVI [Suspect]
     Active Substance: BINIMETINIB
     Dosage: UNK
  30. MEKTOVI [Suspect]
     Active Substance: BINIMETINIB
     Dosage: 30 MG, 2X/DAY
     Route: 048
     Dates: start: 20230309
  31. MEKTOVI [Suspect]
     Active Substance: BINIMETINIB
     Dosage: UNK
  32. MEKTOVI [Suspect]
     Active Substance: BINIMETINIB
     Dosage: 30 MG, 2X/DAY
     Route: 048
  33. MEKTOVI [Suspect]
     Active Substance: BINIMETINIB
     Dosage: 30 MG, 2X/DAY
     Route: 048
  34. MEKTOVI [Suspect]
     Active Substance: BINIMETINIB
     Dosage: 30 MG, 2X/DAY
     Route: 048
     Dates: start: 20231210
  35. MEKTOVI [Suspect]
     Active Substance: BINIMETINIB
     Dosage: 45 MG IN THE MORNING AND 30 MG IN THE EVENING
     Route: 048
     Dates: start: 20240111, end: 20240202
  36. MEKTOVI [Suspect]
     Active Substance: BINIMETINIB
     Dosage: 45 MG IN THE MORNING AND 30 MG IN THE EVENING
     Route: 048
  37. MEKTOVI [Suspect]
     Active Substance: BINIMETINIB
     Dosage: 45 MG IN THE MORNING AND 30 MG IN THE EVENING
     Route: 048
     Dates: end: 20240619
  38. MEKTOVI [Suspect]
     Active Substance: BINIMETINIB
     Dosage: 45 MG IN THE MORNING AND 30 MG IN THE EVENING
     Route: 048
     Dates: start: 20240621, end: 20240624
  39. MEKTOVI [Suspect]
     Active Substance: BINIMETINIB
     Dosage: 45 MG IN THE MORNING AND 30 MG IN THE EVENING
     Route: 048
     Dates: end: 20240629
  40. MEKTOVI [Suspect]
     Active Substance: BINIMETINIB
     Dosage: 45 MG IN THE MORNING AND 30 MG IN THE EVENING
     Route: 048
  41. MEKTOVI [Suspect]
     Active Substance: BINIMETINIB
     Dosage: 45 MG IN THE MORNING AND 30 MG IN THE EVENING
     Route: 048
  42. MEKTOVI [Suspect]
     Active Substance: BINIMETINIB
     Dosage: 45 MG IN THE MORNING AND 30 MG IN THE EVENING
     Route: 048
  43. MEKTOVI [Suspect]
     Active Substance: BINIMETINIB
     Dosage: 45 MG IN THE MORNING AND 30 MG IN THE EVENING
     Route: 048

REACTIONS (28)
  - Melanocytic naevus [Not Recovered/Not Resolved]
  - Pyrexia [Recovered/Resolved]
  - Blood urine present [Recovered/Resolved]
  - Dysuria [Unknown]
  - Urinary tract obstruction [Recovered/Resolved]
  - Clostridium difficile colitis [Not Recovered/Not Resolved]
  - Heart rate irregular [Recovered/Resolved]
  - Testicular swelling [Not Recovered/Not Resolved]
  - Testicular pain [Not Recovered/Not Resolved]
  - Orchitis noninfective [Not Recovered/Not Resolved]
  - Hypothyroidism [Not Recovered/Not Resolved]
  - Fatigue [Unknown]
  - Rash [Not Recovered/Not Resolved]
  - Visual impairment [Recovered/Resolved]
  - Urinary tract inflammation [Recovering/Resolving]
  - Chills [Not Recovered/Not Resolved]
  - Troponin increased [Recovering/Resolving]
  - Urinary tract disorder [Unknown]
  - Urethral disorder [Recovering/Resolving]
  - C-reactive protein increased [Not Recovered/Not Resolved]
  - Blood potassium decreased [Recovered/Resolved]
  - Blood urine present [Not Recovered/Not Resolved]
  - Off label use [Unknown]
  - Melanocytic naevus [Not Recovered/Not Resolved]
  - Peripheral swelling [Recovering/Resolving]
  - Infection [Not Recovered/Not Resolved]
  - Erythema [Not Recovered/Not Resolved]
  - Pain [Not Recovered/Not Resolved]

NARRATIVE: CASE EVENT DATE: 20221229
